FAERS Safety Report 6405728-X (Version None)
Quarter: 2009Q4

REPORT INFORMATION
  Report Type: 
  Country: None (occurrence: None)
  Receive Date: 20091014
  Receipt Date: 20091001
  Transmission Date: 20100525
  Serious: Yes (Hospitalization, Other)
  Sender: FDA-Public Use
  Company Number: 236938K09USA

PATIENT
  Age: 52 Year
  Sex: Female
  Weight: 88 kg

DRUGS (9)
  1. REBIF [Suspect]
     Indication: MULTIPLE SCLEROSIS
     Dosage: 44 MCG, 3 IN 1 WEEKS, SUBCUTANEOUS
     Route: 058
     Dates: start: 20090501, end: 20090601
  2. PREVACID [Concomitant]
  3. EFFEXOR XR [Concomitant]
  4. FIORICET [Concomitant]
  5. LUNESTA [Concomitant]
  6. KEPPRA [Concomitant]
  7. NORCO [Concomitant]
  8. XANAX [Concomitant]
  9. SOLU-MEDROL [Concomitant]

REACTIONS (6)
  - BACK PAIN [None]
  - DEPRESSION [None]
  - INTERVERTEBRAL DISC COMPRESSION [None]
  - PARANOIA [None]
  - PERSONALITY CHANGE [None]
  - SUICIDAL IDEATION [None]
